FAERS Safety Report 6310082-8 (Version None)
Quarter: 2009Q3

REPORT INFORMATION
  Report Type: 
  Country: None (occurrence: None)
  Receive Date: 20090814
  Receipt Date: 20090730
  Transmission Date: 20100115
  Serious: Yes (Other)
  Sender: FDA-Public Use
  Company Number: US-JNJFOC-20090803801

PATIENT
  Sex: Female

DRUGS (26)
  1. ITRACONAZOLE [Suspect]
     Route: 048
  2. ITRACONAZOLE [Suspect]
     Route: 048
  3. ITRACONAZOLE [Suspect]
     Indication: HISTOPLASMOSIS
     Route: 048
  4. LORTAB [Concomitant]
     Indication: PAIN
     Dosage: 1OR 2 TABLETS PRN
     Route: 048
  5. FLEXERIL [Concomitant]
     Indication: SLEEP DISORDER THERAPY
     Route: 061
  6. EFFEXOR [Concomitant]
     Dosage: TAKEN INTERMITTENTLY
     Route: 065
  7. REMICADE [Concomitant]
     Route: 042
  8. REMICADE [Concomitant]
     Indication: RHEUMATOID ARTHRITIS
     Route: 042
  9. SOLU-CORTEF [Concomitant]
     Route: 065
  10. METHOTREXATE SODIUM [Concomitant]
     Route: 065
  11. ASCORBIC ACID [Concomitant]
     Dosage: TAKE ONE TABLET DAILY AS DIRECTED
     Route: 048
  12. LIDODERM [Concomitant]
     Indication: PAIN
     Dosage: 1-3 PATCH DAILY PRN
     Route: 061
  13. LUNESTA [Concomitant]
     Route: 048
  14. CYCLOBENZAPRINE HCL [Concomitant]
     Route: 048
  15. ADVAIR HFA [Concomitant]
     Dosage: 250-50 MCG/DOSE INHALATION
     Route: 055
  16. ALBUTEROL [Concomitant]
     Route: 055
  17. PREVACID [Concomitant]
     Route: 048
  18. VENLAFAXINE HYDROCHLORIDE [Concomitant]
     Route: 048
  19. ACETAMINOPHEN AND HYDROCODONE BITARTRATE [Concomitant]
     Indication: PAIN
     Dosage: 7.5-500 MG; TAKE 1-2 TABLETS EVERY DAY 4-6 HOURS AS NEEDED
     Route: 048
  20. CLARINEX [Concomitant]
     Route: 048
  21. SYMBICORT [Concomitant]
     Route: 055
  22. XOPENEX [Concomitant]
     Dosage: 45 MCG/ACT
     Route: 055
  23. MELOXICAM [Concomitant]
     Route: 048
  24. NABUMETONE [Concomitant]
     Route: 048
  25. FOLIC ACID [Concomitant]
     Route: 048
  26. ULTRAM [Concomitant]
     Route: 048

REACTIONS (14)
  - ABDOMINAL PAIN [None]
  - ALOPECIA [None]
  - ASTHMA [None]
  - CHEST DISCOMFORT [None]
  - FATIGUE [None]
  - FIBROMYALGIA [None]
  - GASTROOESOPHAGEAL REFLUX DISEASE [None]
  - MALAISE [None]
  - NAUSEA [None]
  - RHEUMATOID ARTHRITIS [None]
  - SJOGREN'S SYNDROME [None]
  - SWELLING FACE [None]
  - THROMBOCYTOPENIA [None]
  - URINARY TRACT INFECTION [None]
